FAERS Safety Report 12863605 (Version 2)
Quarter: 2016Q4

REPORT INFORMATION
  Report Type: Report from Study
  Country: US (occurrence: US)
  Receive Date: 20161019
  Receipt Date: 20161230
  Transmission Date: 20170207
  Serious: Yes (Other)
  Sender: FDA-Public Use
  Company Number: US-SAOL THERAPEUTICS-2016SAO00887

PATIENT
  Age: 29 Year
  Sex: Male

DRUGS (8)
  1. BACLOFEN. [Suspect]
     Active Substance: BACLOFEN
     Dosage: 119.92 ?G, \DAY
     Route: 037
     Dates: start: 20151207, end: 20160107
  2. DILAUDID [Suspect]
     Active Substance: HYDROMORPHONE HYDROCHLORIDE
     Dosage: 1.599 MG, \DAY
     Route: 037
     Dates: start: 20151207, end: 20160107
  3. BUPIVACAINE. [Suspect]
     Active Substance: BUPIVACAINE
     Dosage: 23.984 MG, \DAY
     Route: 037
     Dates: start: 20151207, end: 20160107
  4. CLONIDINE. [Suspect]
     Active Substance: CLONIDINE
     Dosage: 119.92 ?G, \DAY
     Route: 037
     Dates: start: 20151207, end: 20160107
  5. BUPIVACAINE. [Suspect]
     Active Substance: BUPIVACAINE
     Dosage: 17.493 MG, \DAY
     Dates: start: 20160107
  6. DILAUDID [Suspect]
     Active Substance: HYDROMORPHONE HYDROCHLORIDE
     Dosage: 1.749 MG, \DAY
     Route: 037
     Dates: start: 20160107
  7. CLONIDINE. [Suspect]
     Active Substance: CLONIDINE
     Dosage: 233.24 ?G, \DAY
     Route: 037
     Dates: start: 20160107
  8. BACLOFEN. [Suspect]
     Active Substance: BACLOFEN
     Dosage: 233.24 ?G, \DAY
     Route: 037
     Dates: start: 20160107

REACTIONS (7)
  - Oedema [Recovered/Resolved]
  - Somnolence [Recovered/Resolved]
  - Beta haemolytic streptococcal infection [Unknown]
  - Pain [Recovered/Resolved]
  - Vomiting [Recovered/Resolved]
  - Nausea [Recovered/Resolved]
  - Sensory disturbance [Recovered/Resolved]

NARRATIVE: CASE EVENT DATE: 20160114
